FAERS Safety Report 13574241 (Version 1)
Quarter: 2017Q2

REPORT INFORMATION
  Report Type: Spontaneous
  Country: US (occurrence: US)
  Receive Date: 20170523
  Receipt Date: 20170523
  Transmission Date: 20170830
  Serious: Yes (Other)
  Sender: FDA-Public Use
  Company Number: US-SA-2017SA089968

PATIENT
  Age: 68 Year
  Sex: Female
  Weight: 47.63 kg

DRUGS (1)
  1. ALLEGRA ALLERGY [Suspect]
     Active Substance: FEXOFENADINE HYDROCHLORIDE
     Indication: MULTIPLE ALLERGIES
     Route: 065

REACTIONS (8)
  - Nasal congestion [Unknown]
  - Depressed level of consciousness [Unknown]
  - Ear discomfort [Unknown]
  - Hypoaesthesia [Unknown]
  - Lethargy [Unknown]
  - Swelling [Unknown]
  - Cough [Unknown]
  - Dizziness [Unknown]
